FAERS Safety Report 8739269 (Version 3)
Quarter: 2012Q4

REPORT INFORMATION
  Report Type: 
  Country: US (occurrence: US)
  Receive Date: 20120823
  Receipt Date: 20121220
  Transmission Date: 20130627
  Serious: Yes (Hospitalization)
  Sender: FDA-Public Use
  Company Number: US-JNJFOC-20120808456

PATIENT
  Age: 55 Year
  Sex: Female
  Weight: 85.73 kg

DRUGS (6)
  1. XARELTO [Suspect]
     Indication: THROMBOSIS PROPHYLAXIS
     Route: 048
     Dates: start: 20120113, end: 20120118
  2. XARELTO [Suspect]
     Indication: KNEE ARTHROPLASTY
     Route: 048
     Dates: start: 20120113, end: 20120118
  3. TRAMADOL [Suspect]
     Indication: KNEE ARTHROPLASTY
     Route: 048
     Dates: start: 20120113
  4. HYDROCODONE [Concomitant]
     Indication: PROCEDURAL PAIN
  5. ZOFRAN [Concomitant]
     Indication: NAUSEA
  6. ACETAMINOPHEN [Concomitant]
     Indication: KNEE OPERATION
     Dates: start: 20120113

REACTIONS (6)
  - Transfusion [Recovered/Resolved]
  - Presyncope [Recovered/Resolved]
  - Dyspnoea [Recovered/Resolved]
  - Asthenia [Recovered/Resolved]
  - Eating disorder [Recovered/Resolved]
  - Headache [Recovered/Resolved]
